FAERS Safety Report 4979776-0 (Version None)
Quarter: 2006Q1

REPORT INFORMATION
  Report Type: 
  Country: None (occurrence: None)
  Receive Date: 20060227
  Receipt Date: 20051130
  Transmission Date: 20060701
  Serious: No
  Sender: FDA-Public Use
  Company Number: PHEH2005US13043

PATIENT
  Age: 59 Year
  Sex: Female

DRUGS (3)
  1. ENABLEX [Suspect]
     Indication: HYPERTONIC BLADDER
     Dosage: 7.5 MG, QD,
     Dates: start: 20051101
  2. CORTISONE ACETATE [Concomitant]
  3. SYNTHROID [Concomitant]

REACTIONS (1)
  - ERYTHEMA [None]
